FAERS Safety Report 8887766 (Version 1)
Quarter: 2012Q4

REPORT INFORMATION
  Report Type: 
  Country: TH (occurrence: TH)
  Receive Date: 20121106
  Receipt Date: 20121106
  Transmission Date: 20130627
  Serious: Yes (Hospitalization)
  Sender: FDA-Public Use
  Company Number: TH-ASTRAZENECA-2012SE79972

PATIENT
  Age: 77 Year
  Sex: Female

DRUGS (1)
  1. MEROPENEM [Suspect]
     Route: 041
     Dates: start: 20120426, end: 20120427

REACTIONS (1)
  - Anaphylactic reaction [Recovering/Resolving]
